FAERS Safety Report 14046534 (Version 1)
Quarter: 2017Q4

REPORT INFORMATION
  Report Type: Spontaneous
  Country: US (occurrence: None)
  Receive Date: 20171005
  Receipt Date: 20171005
  Transmission Date: 20180321
  Serious: Yes (Death)
  Sender: FDA-Public Use
  Company Number: None

PATIENT
  Age: 82 Year
  Sex: Male
  Weight: 59.42 kg

DRUGS (1)
  1. IPILIMUMAB (BMS-734016; MDX-010 TRANSFECTOMA-DERIVED) [Suspect]
     Active Substance: IPILIMUMAB
     Dates: end: 20170810

REACTIONS (5)
  - Diarrhoea [None]
  - Diplopia [None]
  - Asthenia [None]
  - Metastases to central nervous system [None]
  - Dyspnoea [None]

NARRATIVE: CASE EVENT DATE: 20170927
